FAERS Safety Report 5567680-9 (Version None)
Quarter: 2007Q4

REPORT INFORMATION
  Report Type: 
  Country: None (occurrence: None)
  Receive Date: 20071219
  Receipt Date: 20071209
  Transmission Date: 20080405
  Serious: Yes (Other)
  Sender: FDA-Public Use
  Company Number: US-PFIZER INC-2007103239

PATIENT
  Sex: Male
  Weight: 83.9 kg

DRUGS (4)
  1. LIPITOR [Suspect]
     Indication: BLOOD CHOLESTEROL
     Dosage: FREQ:EVERYDAY
     Route: 048
     Dates: start: 20020801, end: 20071204
  2. ATENOLOL [Concomitant]
  3. ALL OTHER THERAPEUTIC PRODUCTS [Concomitant]
     Indication: NEPHROLITHIASIS
  4. LORATADINE [Concomitant]
     Indication: HYPERSENSITIVITY

REACTIONS (7)
  - ACTIVITIES OF DAILY LIVING IMPAIRED [None]
  - ARTHRALGIA [None]
  - ASTHENIA [None]
  - BALANCE DISORDER [None]
  - MOBILITY DECREASED [None]
  - MYALGIA [None]
  - PAIN [None]
